FAERS Safety Report 9970732 (Version 1)
Quarter: 2014Q1

REPORT INFORMATION
  Report Type: Report from Study
  Country: US (occurrence: US)
  Receive Date: 20140306
  Receipt Date: 20140306
  Transmission Date: 20141002
  Serious: No
  Sender: FDA-Public Use
  Company Number: US-ABBVIE-13P-163-1147707-00

PATIENT
  Age: 53 Year
  Sex: Female
  Weight: 61.29 kg

DRUGS (4)
  1. HUMIRA [Suspect]
     Indication: PSORIASIS
     Dates: start: 20130910, end: 20130910
  2. HUMIRA [Suspect]
     Indication: PSORIATIC ARTHROPATHY
  3. IBUPROFEN [Concomitant]
     Indication: HEADACHE
  4. ASPIRIN [Concomitant]
     Indication: CARDIOVASCULAR EVENT PROPHYLAXIS

REACTIONS (1)
  - Injection site rash [Not Recovered/Not Resolved]
